FAERS Safety Report 16763624 (Version 5)
Quarter: 2020Q2

REPORT INFORMATION
  Report Type: Spontaneous
  Country: US (occurrence: US)
  Receive Date: 20190902
  Receipt Date: 20200528
  Transmission Date: 20200713
  Serious: Yes (Other)
  Sender: FDA-Public Use
  Company Number: US-GILEAD-2019-0425697

PATIENT
  Age: 60 Year
  Sex: Male

DRUGS (10)
  1. ALLOPURINOL. [Concomitant]
     Active Substance: ALLOPURINOL
  2. STRIBILD [Suspect]
     Active Substance: COBICISTAT\ELVITEGRAVIR\EMTRICITABINE\TENOFOVIR DISOPROXIL FUMARATE
     Indication: HIV INFECTION
     Dosage: UNK
     Route: 048
     Dates: start: 2010, end: 201803
  3. METHOCARBAMOL. [Concomitant]
     Active Substance: METHOCARBAMOL
  4. HYDROCODONE BITARTRATE AND ACETAMINOPHEN [Concomitant]
     Active Substance: ACETAMINOPHEN\HYDROCODONE BITARTRATE
  5. RANITIDINE. [Concomitant]
     Active Substance: RANITIDINE
  6. VITAMIN D 2000 [Concomitant]
     Active Substance: VITAMIN D NOS
  7. HYDROCHLOROTHIAZIDE AND LISINOPRIL [Concomitant]
     Active Substance: HYDROCHLOROTHIAZIDE\LISINOPRIL
  8. DILTIAZEM. [Concomitant]
     Active Substance: DILTIAZEM
  9. TAMSULOSIN [Concomitant]
     Active Substance: TAMSULOSIN
  10. ATORVASTATIN [Concomitant]
     Active Substance: ATORVASTATIN

REACTIONS (8)
  - Anhedonia [Unknown]
  - Bone loss [Not Recovered/Not Resolved]
  - Economic problem [Unknown]
  - Anxiety [Unknown]
  - Emotional distress [Unknown]
  - Osteonecrosis [Unknown]
  - Pain [Unknown]
  - Tooth loss [Unknown]

NARRATIVE: CASE EVENT DATE: 20190412
